FAERS Safety Report 7324533-3 (Version None)
Quarter: 2011Q1

REPORT INFORMATION
  Report Type: 
  Country: None (occurrence: None)
  Receive Date: 20110301
  Receipt Date: 20110222
  Transmission Date: 20110831
  Serious: Yes (Other)
  Sender: FDA-Public Use
  Company Number: JP-PFIZER INC-2011032660

PATIENT
  Age: 85 Year
  Sex: Female
  Weight: 34.2 kg

DRUGS (3)
  1. HYALEIN [Concomitant]
     Indication: OPHTHALMOLOGIC TREATMENT
     Dosage: 1 GTT, 4X/DAY
     Route: 047
  2. CRAVIT [Concomitant]
     Indication: OPHTHALMOLOGIC TREATMENT
     Dosage: 1 GTT, 4X/DAY
     Route: 047
     Dates: start: 20101025
  3. TOLTERODINE TARTRATE [Suspect]
     Indication: HYPERTONIC BLADDER
     Dosage: 4 MG, 1X/DAY
     Route: 048
     Dates: start: 20101025, end: 20101125

REACTIONS (4)
  - CORNEAL DISORDER [None]
  - LACRIMATION DECREASED [None]
  - VISUAL ACUITY REDUCED [None]
  - VISION BLURRED [None]
